FAERS Safety Report 5706684-X (Version None)
Quarter: 2008Q2

REPORT INFORMATION
  Report Type: 
  Country: None (occurrence: None)
  Receive Date: 20080415
  Receipt Date: 20080415
  Transmission Date: 20081010
  Serious: Yes (Hospitalization)
  Sender: FDA-Public Use
  Company Number: None

PATIENT
  Age: 64 Year
  Sex: Male
  Weight: 75 kg

DRUGS (1)
  1. MIRTAZAPINE [Suspect]
     Indication: DEPRESSION
     Dosage: 15MG PM PO
     Route: 048
     Dates: start: 20080214, end: 20080214

REACTIONS (3)
  - ASTHENIA [None]
  - DIZZINESS [None]
  - PRESYNCOPE [None]
